FAERS Safety Report 11310179 (Version 2)
Quarter: 2015Q4

REPORT INFORMATION
  Report Type: Report from Study
  Country: JP (occurrence: JP)
  Receive Date: 20150724
  Receipt Date: 20151005
  Transmission Date: 20160304
  Serious: Yes (Life-Threatening, Hospitalization)
  Sender: FDA-Public Use
  Company Number: JP-ASTRAZENECA-2015SE31923

PATIENT
  Age: 57 Year
  Sex: Female
  Weight: 30 kg

DRUGS (9)
  1. IRESSA [Suspect]
     Active Substance: GEFITINIB
     Indication: LUNG ADENOCARCINOMA
     Route: 048
     Dates: start: 20110620, end: 20150225
  2. THYRADIN S [Concomitant]
     Active Substance: LEVOTHYROXINE SODIUM
     Route: 048
  3. ALOSITOL [Concomitant]
     Active Substance: ALLOPURINOL
     Route: 048
  4. ALIMTA [Suspect]
     Active Substance: PEMETREXED DISODIUM
     Indication: LUNG ADENOCARCINOMA
     Dosage: 420 MG - 565 MG ONCE EVERY 3 - 5 WEEKS
     Route: 042
     Dates: start: 20141218, end: 20150319
  5. NEXIUM CAPSULES 20MG [Concomitant]
     Route: 048
  6. URSO [Concomitant]
     Active Substance: URSODIOL
     Route: 048
  7. REBAMIPIDE [Concomitant]
     Active Substance: REBAMIPIDE
     Route: 048
  8. THYRADIN S [Concomitant]
     Active Substance: LEVOTHYROXINE SODIUM
     Route: 048
  9. IRESSA [Suspect]
     Active Substance: GEFITINIB
     Indication: LUNG ADENOCARCINOMA
     Route: 048
     Dates: start: 20150302, end: 20150331

REACTIONS (3)
  - Diarrhoea [Recovering/Resolving]
  - International normalised ratio increased [Recovered/Resolved]
  - Decreased appetite [Recovered/Resolved]

NARRATIVE: CASE EVENT DATE: 20150218
